FAERS Safety Report 16812558 (Version 2)
Quarter: 2019Q3

REPORT INFORMATION
  Report Type: Spontaneous
  Country: US (occurrence: US)
  Receive Date: 20190916
  Receipt Date: 20190916
  Transmission Date: 20191005
  Serious: Yes (Hospitalization, Other)
  Sender: FDA-Public Use
  Company Number: US-GILEAD-2019-0428409

PATIENT
  Age: 42 Year
  Sex: Female

DRUGS (12)
  1. ATOVAQUONE. [Concomitant]
     Active Substance: ATOVAQUONE
     Indication: TOXOPLASMOSIS
     Dosage: 1500 MG, BID
     Route: 048
  2. COBICISTAT [Interacting]
     Active Substance: COBICISTAT
     Indication: HIV INFECTION
     Dosage: 150 MG, UNK
     Route: 065
  3. PYRIMETHAMINE [Interacting]
     Active Substance: PYRIMETHAMINE
     Indication: CEREBRAL TOXOPLASMOSIS
     Dosage: 75 MG, QD
     Route: 048
  4. SULFADIAZINE. [Interacting]
     Active Substance: SULFADIAZINE
     Indication: CEREBRAL TOXOPLASMOSIS
     Dosage: 1000 MG, EVERY 6 HOURS
     Route: 048
  5. EMTRICITABINE [Interacting]
     Active Substance: EMTRICITABINE
     Indication: HIV INFECTION
     Dosage: 200 MG, UNK
     Route: 065
  6. LEUCOVORINE [Interacting]
     Active Substance: LEUCOVORIN
     Indication: CEREBRAL TOXOPLASMOSIS
     Dosage: 15 MG, QD
     Route: 048
  7. CALCIUM CARBONATE. [Interacting]
     Active Substance: CALCIUM CARBONATE
     Indication: PRODUCT USED FOR UNKNOWN INDICATION
     Dosage: 1500 MG, QD, (600-MG ELEMENTAL CALCIUM)
     Route: 048
  8. FLUOXETINE [Concomitant]
     Active Substance: FLUOXETINE HYDROCHLORIDE
     Indication: DEPRESSION
     Dosage: UNK
     Route: 065
  9. CLINDAMYCIN. [Concomitant]
     Active Substance: CLINDAMYCIN
     Indication: TOXOPLASMOSIS
     Dosage: 600 MG, Q6H
     Route: 042
  10. VEMLIDY [Suspect]
     Active Substance: TENOFOVIR ALAFENAMIDE FUMARATE
     Indication: HIV INFECTION
     Dosage: 10 MG, UNK
     Route: 065
  11. VEMLIDY [Interacting]
     Active Substance: TENOFOVIR ALAFENAMIDE FUMARATE
     Dosage: 25 MG
     Route: 065
  12. ELVITEGRAVIR [Interacting]
     Active Substance: ELVITEGRAVIR
     Indication: HIV INFECTION
     Dosage: 150 MG, UNK
     Route: 065

REACTIONS (6)
  - Drug resistance [Unknown]
  - Neutropenia [Unknown]
  - Drug interaction [Unknown]
  - Viral mutation identified [Unknown]
  - Virologic failure [Unknown]
  - Off label use [Unknown]
